FAERS Safety Report 9210107 (Version 3)
Quarter: 2013Q2

REPORT INFORMATION
  Report Type: Report from Study
  Country: CA (occurrence: CA)
  Receive Date: 20130404
  Receipt Date: 20130531
  Transmission Date: 20140414
  Serious: Yes (Hospitalization, Other)
  Sender: FDA-Public Use
  Company Number: CA-EISAI INC-E7389-03700-SOL-CA

PATIENT
  Age: 67 Year
  Sex: Female
  Weight: 79 kg

DRUGS (7)
  1. HALAVEN [Suspect]
     Indication: BREAST CANCER METASTATIC
     Route: 041
     Dates: start: 20120612, end: 20130409
  2. HALAVEN [Suspect]
     Route: 041
     Dates: start: 20121001
  3. GABAPENTIN [Concomitant]
     Indication: NAUSEA
     Route: 048
     Dates: start: 20121019
  4. SYNTHROID [Concomitant]
     Route: 065
  5. MULTIVITAMINS [Concomitant]
     Route: 065
  6. VITAMIN D [Concomitant]
     Route: 065
  7. CALCIUM [Concomitant]
     Route: 065

REACTIONS (7)
  - Fall [Recovered/Resolved]
  - Lower limb fracture [Unknown]
  - Ligament rupture [Unknown]
  - Arthropathy [Unknown]
  - Stress [Not Recovered/Not Resolved]
  - Disease progression [Unknown]
  - Metastases to bone [Not Recovered/Not Resolved]
